FAERS Safety Report 14638794 (Version 1)
Quarter: 2018Q1

REPORT INFORMATION
  Report Type: Spontaneous
  Country: FR (occurrence: FR)
  Receive Date: 20180315
  Receipt Date: 20180315
  Transmission Date: 20180509
  Serious: Yes (Other)
  Sender: FDA-Public Use
  Company Number: FR-MERCK KGAA-2043753

PATIENT
  Age: 47 Year
  Sex: Female

DRUGS (1)
  1. NOVOTHYROX [Suspect]
     Active Substance: LEVOTHYROXINE SODIUM
     Indication: PRODUCT USED FOR UNKNOWN INDICATION
     Dates: end: 2017

REACTIONS (13)
  - Mood swings [None]
  - Somnolence [None]
  - Muscle spasms [Recovered/Resolved]
  - Irritability [None]
  - Disturbance in attention [None]
  - Fatigue [None]
  - Asthenia [None]
  - Loss of personal independence in daily activities [None]
  - Insomnia [Recovered/Resolved]
  - Apathy [None]
  - Blood thyroid stimulating hormone decreased [None]
  - Personal relationship issue [None]
  - Dizziness [Recovered/Resolved]

NARRATIVE: CASE EVENT DATE: 20171017
